FAERS Safety Report 5287103-7 (Version None)
Quarter: 2007Q1

REPORT INFORMATION
  Report Type: 
  Country: None (occurrence: None)
  Receive Date: 20070330
  Receipt Date: 20070326
  Transmission Date: 20070707
  Serious: Yes (Hospitalization, Other)
  Sender: FDA-Public Use
  Company Number: 2007-00834

PATIENT
  Age: 75 Year
  Sex: Female

DRUGS (2)
  1. VELCADE [Suspect]
     Indication: MULTIPLE MYELOMA
     Dosage: 1.30 MG/M2
  2. DECADRON [Suspect]
     Indication: MULTIPLE MYELOMA
     Dosage: 40.00 MG

REACTIONS (2)
  - CHEST PAIN [None]
  - PANCREATITIS [None]
